FAERS Safety Report 14600677 (Version 1)
Quarter: 2018Q1

REPORT INFORMATION
  Report Type: Spontaneous
  Country: US (occurrence: US)
  Receive Date: 20180303
  Receipt Date: 20180303
  Transmission Date: 20180509
  Serious: Yes (Death)
  Sender: FDA-Public Use
  Company Number: None

PATIENT
  Age: 77 Year
  Sex: Female

DRUGS (14)
  1. PILOCARPINE. [Concomitant]
     Active Substance: PILOCARPINE
  2. ALBUTEROL. [Concomitant]
     Active Substance: ALBUTEROL
  3. CYCLOBENZAPR [Concomitant]
     Active Substance: CYCLOBENZAPRINE
  4. OPSUMIT [Concomitant]
     Active Substance: MACITENTAN
  5. MYCOPHENOLAT [Concomitant]
     Active Substance: MYCOPHENOLATE MOFETIL
  6. TRIAMCINOLON [Concomitant]
  7. PROAIR HFA [Concomitant]
     Active Substance: ALBUTEROL SULFATE
  8. HYDROCO/APAP [Concomitant]
     Active Substance: ACETAMINOPHEN\HYDROCODONE
  9. SILDENAFIL 20MG [Suspect]
     Active Substance: SILDENAFIL
     Indication: PULMONARY ARTERIAL HYPERTENSION
     Route: 048
     Dates: start: 20180215
  10. FUROSEMIDE. [Concomitant]
     Active Substance: FUROSEMIDE
  11. AMOXICILLIN. [Concomitant]
     Active Substance: AMOXICILLIN
  12. PREDNISONE. [Concomitant]
     Active Substance: PREDNISONE
  13. FLUTICASONE. [Concomitant]
     Active Substance: FLUTICASONE
  14. CEFDINIR. [Concomitant]
     Active Substance: CEFDINIR

REACTIONS (1)
  - Death [None]

NARRATIVE: CASE EVENT DATE: 20180223
